FAERS Safety Report 9391001 (Version 1)
Quarter: 2013Q3

REPORT INFORMATION
  Report Type: Spontaneous
  Country: GB (occurrence: None)
  Receive Date: 20130705
  Receipt Date: 20130705
  Transmission Date: 20140515
  Serious: Yes (Death, Hospitalization)
  Sender: FDA-Public Use
  Company Number: GB-023346

PATIENT
  Age: 77 Year
  Sex: Male

DRUGS (46)
  1. CHLORAMBUCIL [Suspect]
     Indication: CHRONIC LYMPHOCYTIC LEUKAEMIA
     Dosage: 20 MILLIGRAM (20 MILLIGRAM), ORAL
     Route: 048
     Dates: start: 20090618
  2. RITUXIMAB [Suspect]
     Indication: CHRONIC LYMPHOCYTIC LEUKAEMIA
     Dosage: 750 MILLIGRAM (750 MILLIGRAM), INTRAVENOUS (NOT OTHERWISE SPECIFIED)
     Route: 042
     Dates: start: 20090618
  3. CALCIUM CARBONATE (CALCIUM CARBONATE) (UNKNOWN) [Concomitant]
  4. ALLOPURINOL [Concomitant]
  5. SENNA (SENNA GLYCOSIDES) [Concomitant]
  6. PARCETAMOL (PARACATMOL) [Concomitant]
  7. TEMAZEPAM (TEMAZEPAM) [Concomitant]
  8. DILTIAZEM [Concomitant]
  9. LISINOPRIL (LISINOPIRL) [Concomitant]
  10. SIMVASTATIN (SIMVASTATIN) [Concomitant]
  11. ISOSORBIDE MONOITRATE (ISOSORBIDE MONONITRATE) [Concomitant]
  12. LANTUS (INSULIN GLARGINE) [Concomitant]
  13. ACTRAPID (INSULIN (HUMAN)) [Concomitant]
  14. LIDOCAINE 2% (LIDOCAINE) [Concomitant]
  15. TAZOCIN (PIPERACILLIN) [Concomitant]
  16. HYDROXOCOBALAIN (HYDROXOCOBALAMIN) [Concomitant]
  17. GCSF (GRANULCYTE COLONG-STIMULATING FACTOR) [Concomitant]
  18. ESCITALOPRAM (ESITALOPRAM) [Concomitant]
  19. GENTAMICIN (GENTAMICIN) [Concomitant]
  20. CO-TRIMOXAZOLE (SULFAMETHOXAZOLE AND TRIMEHOPRIM) [Concomitant]
  21. FLUCONAZOLE (FLUCONAZOLE) [Concomitant]
  22. FORTISIP [Concomitant]
  23. METFORMIN (METFORMIN) [Concomitant]
  24. PREDNISOLONE (PREDNISOLONE) [Concomitant]
  25. WARFARIN (WARFARIN) [Concomitant]
  26. ASPIRIN (ACETYLSALICYLIC ACID) [Concomitant]
  27. FUROSEMIDE (FUROEMIDE) [Concomitant]
  28. CLARITHROMYCIN (CLARITHROMYCIN) [Concomitant]
  29. SODIUM BICARBONATE EAR DROPS (SODIUM BICARBONATE) [Concomitant]
  30. OMPERAZOLE (OMPERAZOLE) [Concomitant]
  31. FOLIC ACID (FOLIC ACID) [Concomitant]
  32. DEXAMETHASONE (DEXAMETHASONE) [Concomitant]
  33. RASBURICASE (RASBURICASE) [Concomitant]
  34. MORPHINE [Concomitant]
  35. MIDEAZOLAM (MIDAZOLAM) [Concomitant]
  36. CODEINE (CODEINE) [Concomitant]
  37. CLEXANE (ENOXAPARIN) [Concomitant]
  38. SANDO K (POTASSIUM CHLORIDE) [Concomitant]
  39. LANSOPRAZOLE (LANSOPRAZOLE) [Concomitant]
  40. CODEINE LINCTUS (CODEINE) [Concomitant]
  41. METOCLOPRAMIDE (METOCLOPRAMIDE) [Concomitant]
  42. SLOW K (POTASSIUM CHLORIDE) [Concomitant]
  43. VITAMIN K (VITAMIN K) [Concomitant]
  44. AMBISOME(AMPHOTERICIN B) [Concomitant]
  45. HYDROCORTISONE (HYDROCORTISONE0 [Concomitant]
  46. ZOPICLONE (ZOPICLONE) [Concomitant]

REACTIONS (2)
  - Neutropenic sepsis [None]
  - Bronchopulmonary aspergillosis [None]
